FAERS Safety Report 20649233 (Version 1)
Quarter: 2022Q1

REPORT INFORMATION
  Report Type: Spontaneous
  Country: US (occurrence: US)
  Receive Date: 20220329
  Receipt Date: 20220329
  Transmission Date: 20220423
  Serious: No
  Sender: FDA-Public Use
  Company Number: US-BAYER-2022A040784

PATIENT
  Age: 69 Year
  Sex: Male

DRUGS (3)
  1. ALEVE [Suspect]
     Active Substance: NAPROXEN SODIUM
     Indication: Musculoskeletal stiffness
     Dosage: 2 DF, ONCE EVERY COUPLE OF MONTHS
     Route: 048
     Dates: start: 2002, end: 2022
  2. ALEVE [Suspect]
     Active Substance: NAPROXEN SODIUM
     Indication: Pain
  3. ALEVE [Suspect]
     Active Substance: NAPROXEN SODIUM
     Indication: Pain prophylaxis

REACTIONS (4)
  - Drug ineffective for unapproved indication [None]
  - Drug effective for unapproved indication [None]
  - Product quality issue [None]
  - Off label use [None]

NARRATIVE: CASE EVENT DATE: 20020101
